FAERS Safety Report 7464459-8 (Version None)
Quarter: 2011Q2

REPORT INFORMATION
  Report Type: 
  Country: None (occurrence: None)
  Receive Date: 20110509
  Receipt Date: 20110502
  Transmission Date: 20111010
  Serious: Yes (Other)
  Sender: FDA-Public Use
  Company Number: US-PFIZER INC-2011094738

PATIENT
  Sex: Male
  Weight: 113.38 kg

DRUGS (4)
  1. GEODON [Suspect]
     Indication: SCHIZOAFFECTIVE DISORDER
     Dosage: 180 MG, 1X/DAY
     Route: 048
     Dates: start: 20080701
  2. PROLIXIN [Suspect]
     Indication: SCHIZOAFFECTIVE DISORDER
     Dosage: 10 MG, 1X/DAY
     Dates: start: 19850101
  3. TOPAMAX [Suspect]
     Indication: BIPOLAR DISORDER
     Dosage: UNK
     Dates: start: 20080101
  4. SEROQUEL [Concomitant]
     Dosage: UNK

REACTIONS (2)
  - INSOMNIA [None]
  - TARDIVE DYSKINESIA [None]
